FAERS Safety Report 7275791-5 (Version None)
Quarter: 2011Q1

REPORT INFORMATION
  Report Type: 
  Country: None (occurrence: None)
  Receive Date: 20110204
  Receipt Date: 20110124
  Transmission Date: 20110831
  Serious: Yes (Hospitalization, Other)
  Sender: FDA-Public Use
  Company Number: US-MERCK-1010USA01908

PATIENT
  Age: 64 Year
  Sex: Female
  Weight: 79 kg

DRUGS (5)
  1. VITAMINS (UNSPECIFIED) [Concomitant]
     Route: 065
  2. FOSAMAX [Suspect]
     Indication: OSTEOPOROSIS
     Route: 048
     Dates: start: 19970112, end: 20071001
  3. CALCIUM (UNSPECIFIED) [Concomitant]
     Route: 065
  4. ASCORBIC ACID [Concomitant]
     Route: 065
  5. VITAMIN D (UNSPECIFIED) [Concomitant]
     Route: 065

REACTIONS (34)
  - ARTHRITIS INFECTIVE [None]
  - HAND FRACTURE [None]
  - ARTERIOSCLEROSIS [None]
  - MITRAL VALVE INCOMPETENCE [None]
  - MASTOCYTOSIS [None]
  - OEDEMA PERIPHERAL [None]
  - KYPHOSIS [None]
  - SPINAL COMPRESSION FRACTURE [None]
  - INCISION SITE HAEMATOMA [None]
  - UPPER LIMB FRACTURE [None]
  - POST PROCEDURAL HAEMORRHAGE [None]
  - HYPOAESTHESIA [None]
  - LEFT VENTRICULAR HYPERTROPHY [None]
  - DEEP VEIN THROMBOSIS [None]
  - PROCEDURAL HYPOTENSION [None]
  - TIBIA FRACTURE [None]
  - OSTEOARTHRITIS [None]
  - TRICUSPID VALVE INCOMPETENCE [None]
  - BONE DENSITY DECREASED [None]
  - FEMUR FRACTURE [None]
  - ARTHROPATHY [None]
  - SPONDYLOLISTHESIS [None]
  - OSTEOPENIA [None]
  - STRESS FRACTURE [None]
  - SCOLIOSIS [None]
  - PULMONARY VALVE INCOMPETENCE [None]
  - DYSLIPIDAEMIA [None]
  - ECCHYMOSIS [None]
  - COMPRESSION FRACTURE [None]
  - DEVICE FAILURE [None]
  - PULMONARY OEDEMA [None]
  - HYPERTENSION [None]
  - ARTHRALGIA [None]
  - INTERVERTEBRAL DISC DEGENERATION [None]
